FAERS Safety Report 18483176 (Version 1)
Quarter: 2020Q4

REPORT INFORMATION
  Report Type: Spontaneous
  Country: GB (occurrence: GB)
  Receive Date: 20201110
  Receipt Date: 20201110
  Transmission Date: 20210114
  Serious: Yes (Hospitalization)
  Sender: FDA-Public Use
  Company Number: GB-SA-2020SA244207

PATIENT

DRUGS (14)
  1. DUPIXENT [Suspect]
     Active Substance: DUPILUMAB
     Indication: ASTHMA
     Dosage: 300 MG, QOW
     Route: 058
     Dates: start: 20200101, end: 20200730
  2. PREGNACARE [ASCORBIC ACID;FOLIC ACID;NICOTINAMIDE;PYRIDOXINE;RIBOFLAVI [Concomitant]
     Indication: PREGNANCY
     Dosage: 1 UNK, QD
  3. SALBUTAMOL [Concomitant]
     Active Substance: ALBUTEROL
     Indication: ASTHMA
     Dosage: UNK
     Dates: start: 1987
  4. DIPROBASE [CETOMACROGOL;CETOSTEARYL ALCOHOL;PARAFFIN, LIQUID;WHITE SOF [Concomitant]
     Indication: ECZEMA
     Dosage: 1 UNK, 4X
     Dates: start: 1987
  5. EUMOVATE [Concomitant]
     Active Substance: CLOBETASONE BUTYRATE
     Indication: ECZEMA
     Dosage: 1 UNK, TID
     Dates: start: 20200901
  6. CETIRIZINE [Concomitant]
     Active Substance: CETIRIZINE HYDROCHLORIDE
     Indication: SEASONAL ALLERGY
     Dosage: 10 MG
     Dates: start: 2006
  7. FOSTAIR [Concomitant]
     Active Substance: BECLOMETHASONE\FORMOTEROL
     Indication: ASTHMA
     Dosage: 3 DF, BID
     Dates: start: 2016
  8. FUROSEMIDE. [Concomitant]
     Active Substance: FUROSEMIDE
     Indication: FLUID RETENTION
     Dosage: 40 MG, QD
     Dates: start: 20201007, end: 20201015
  9. IPRATROPIUM [Concomitant]
     Active Substance: IPRATROPIUM
     Indication: ASTHMA
     Dosage: 500 MCI
     Dates: start: 20201005, end: 20201010
  10. FLU VACCINE VII [Concomitant]
     Active Substance: INFLUENZA VIRUS VACCINE
     Indication: INFLUENZA
     Dosage: UNK
     Dates: start: 20201026, end: 20201026
  11. CALCICHEW D3 [Concomitant]
     Active Substance: CALCIUM\CHOLECALCIFEROL
     Indication: BONE DISORDER
     Dosage: 2 MG
     Dates: start: 2005
  12. CETIRIZINE [Concomitant]
     Active Substance: CETIRIZINE HYDROCHLORIDE
     Dosage: 20 MG
  13. THEOPHYLLINE [Concomitant]
     Active Substance: THEOPHYLLINE ANHYDROUS
     Indication: ASTHMA
     Dosage: 225 MG, BID
     Dates: start: 2001
  14. BOOSTRIX-IPV [Concomitant]
     Active Substance: DIPHTHERIA AND TETANUS TOXOIDS AND ACELLULAR PERTUSSIS ADSORBED AND INACTIVATED POLIOVIRUS VACCINE
     Indication: PERTUSSIS
     Dosage: UNK
     Dates: start: 20201104, end: 20201104

REACTIONS (2)
  - Exposure during pregnancy [Unknown]
  - Asthma [Recovering/Resolving]

NARRATIVE: CASE EVENT DATE: 20200901
